FAERS Safety Report 4526603-1 (Version None)
Quarter: 2004Q4

REPORT INFORMATION
  Report Type: 
  Country: None (occurrence: None)
  Receive Date: 20041213
  Receipt Date: 20041202
  Transmission Date: 20050328
  Serious: Yes (Death)
  Sender: FDA-Public Use
  Company Number: HQWYE317117OCT03

PATIENT
  Age: 57 Year
  Sex: Male

DRUGS (2)
  1. SIROLIMUS (SIROLIMUS, TABLET) [Suspect]
     Indication: PROPHYLAXIS AGAINST TRANSPLANT REJECTION
     Dosage: ORAL
     Route: 048
     Dates: start: 19990321, end: 20030113
  2. IMMUNOSUPPRESSIVE AGENTS [Suspect]
     Indication: PROPHYLAXIS AGAINST TRANSPLANT REJECTION

REACTIONS (6)
  - CONFUSIONAL STATE [None]
  - IMMUNOSUPPRESSION [None]
  - LOWER GASTROINTESTINAL HAEMORRHAGE [None]
  - PYREXIA [None]
  - RENAL FAILURE [None]
  - SARCOMA [None]
